FAERS Safety Report 6661874-7 (Version None)
Quarter: 2010Q1

REPORT INFORMATION
  Report Type: 
  Country: None (occurrence: None)
  Receive Date: 20100331
  Receipt Date: 20090901
  Transmission Date: 20100710
  Serious: No
  Sender: FDA-Public Use
  Company Number: US-BRISTOL-MYERS SQUIBB COMPANY-14762421

PATIENT
  Age: 53 Year
  Sex: Male

DRUGS (10)
  1. ERBITUX [Suspect]
     Indication: OESOPHAGEAL CARCINOMA
     Dosage: 1 TIME LOADING DOSE
     Route: 042
     Dates: start: 20090501
  2. PHENOBARBITAL TAB [Concomitant]
     Route: 048
  3. VICODIN [Concomitant]
     Route: 048
  4. TENORMIN [Concomitant]
     Route: 048
  5. ZONEGRAN [Concomitant]
     Route: 048
  6. REMERON [Concomitant]
     Route: 048
  7. AMBIEN [Concomitant]
  8. PROTONIX [Concomitant]
  9. MULTIPLE VITAMINS [Concomitant]
  10. COLACE [Concomitant]

REACTIONS (2)
  - DYSPNOEA [None]
  - PRURITUS [None]
